FAERS Safety Report 21150973 (Version 15)
Quarter: 2023Q1

REPORT INFORMATION
  Report Type: Report from Study
  Country: TR (occurrence: TR)
  Receive Date: 20220729
  Receipt Date: 20230224
  Transmission Date: 20230418
  Serious: Yes (Death, Life-Threatening, Hospitalization)
  Sender: FDA-Public Use
  Company Number: TR-SA-SAC20220629000706

PATIENT
  Age: 82 Year
  Sex: Male
  Weight: 79.5 kg

DRUGS (33)
  1. DOCETAXEL [Suspect]
     Active Substance: DOCETAXEL
     Indication: Non-small cell lung cancer
     Dosage: 147 MG(INFUSION RATE 147MG/H)
     Route: 042
     Dates: start: 20220621, end: 20220621
  2. DOCETAXEL [Suspect]
     Active Substance: DOCETAXEL
     Dosage: 147 MG(INFUSION RATE 147MG/H)
     Route: 042
     Dates: start: 20220713, end: 20220713
  3. TRANEXAMIC ACID [Concomitant]
     Active Substance: TRANEXAMIC ACID
     Dosage: 500 MG
     Route: 048
     Dates: start: 20220530, end: 20220629
  4. CALCIMAX D3 [CALCIUM CARBONATE;COLECALCIFEROL] [Concomitant]
     Dosage: 880 IU/1000 MG
     Route: 048
     Dates: start: 20220621, end: 20220725
  5. DEXAMETHASONE [Concomitant]
     Active Substance: DEXAMETHASONE
     Indication: Prophylaxis
     Dosage: UNK
     Route: 048
     Dates: start: 20220621, end: 20220623
  6. DEXAMETHASONE [Concomitant]
     Active Substance: DEXAMETHASONE
     Dosage: 8 MG
     Route: 048
     Dates: start: 20220712, end: 20220714
  7. LANSOPRAZOLE [Concomitant]
     Active Substance: LANSOPRAZOLE
     Indication: Prophylaxis
     Dosage: UNK
     Route: 048
     Dates: start: 20220621, end: 20220623
  8. BEMIKS [CALCIUM PANTOTHENATE;CYANOCOBALAMIN;FOLIC ACID;NICOTINAMIDE;PY [Concomitant]
     Dosage: UNK
     Route: 048
     Dates: start: 20220706
  9. PEGFILGRASTIM [Concomitant]
     Active Substance: PEGFILGRASTIM
     Indication: Prophylaxis
     Dosage: UNK
     Route: 042
     Dates: start: 20220622, end: 20220622
  10. PEGFILGRASTIM [Concomitant]
     Active Substance: PEGFILGRASTIM
     Dosage: UNK
     Route: 042
     Dates: start: 20220714, end: 20220714
  11. MEGESTROL ACETATE [Concomitant]
     Active Substance: MEGESTROL ACETATE
     Dosage: UNK
     Route: 048
     Dates: start: 20220706
  12. DENOSUMAB [Concomitant]
     Active Substance: DENOSUMAB
     Indication: Prophylaxis
     Dosage: UNK
     Route: 042
     Dates: start: 20211004, end: 20220717
  13. IVABRADINE HYDROCHLORIDE [Concomitant]
     Active Substance: IVABRADINE HYDROCHLORIDE
     Dosage: UNK
     Route: 042
     Dates: start: 20220725, end: 20220726
  14. DEXKETOPROFEN TROMETAMOL [Concomitant]
     Active Substance: DEXKETOPROFEN TROMETAMOL
     Dosage: UNK
     Route: 048
     Dates: start: 2020, end: 20220810
  15. PANTOPRAZOLE SODIUM [Concomitant]
     Active Substance: PANTOPRAZOLE SODIUM
     Indication: Prophylaxis
     Dosage: UNK
     Route: 042
     Dates: start: 20220627, end: 20220629
  16. PANTOPRAZOLE SODIUM [Concomitant]
     Active Substance: PANTOPRAZOLE SODIUM
     Dosage: UNK
     Route: 042
     Dates: start: 20220719, end: 20220726
  17. ISOTONIC SODIUM CHLORIDE SOLUTION [Concomitant]
     Active Substance: SODIUM CHLORIDE
     Indication: Prophylaxis
     Dosage: UNK
     Route: 042
     Dates: start: 20220627, end: 20220629
  18. ISOTONIC SODIUM CHLORIDE SOLUTION [Concomitant]
     Active Substance: SODIUM CHLORIDE
     Dosage: UNK
     Route: 042
     Dates: start: 20220719, end: 20220725
  19. ASIST [ACETYLCYSTEINE] [Concomitant]
     Indication: Prophylaxis
     Dosage: UNK
     Route: 042
     Dates: start: 20220627, end: 20220629
  20. ASIST [ACETYLCYSTEINE] [Concomitant]
     Dosage: UNK
     Route: 042
     Dates: start: 20220719, end: 20220804
  21. PAROL [Concomitant]
     Active Substance: ACETAMINOPHEN
     Dosage: UNK
     Route: 042
     Dates: start: 20220627, end: 20220628
  22. TRAMADOL HYDROCHLORIDE [Concomitant]
     Active Substance: TRAMADOL HYDROCHLORIDE
     Indication: Prophylaxis
     Dosage: UNK
     Route: 042
     Dates: start: 20220627, end: 20220627
  23. KYTRIL [Concomitant]
     Active Substance: GRANISETRON HYDROCHLORIDE
     Indication: Prophylaxis
     Dosage: UNK
     Route: 042
     Dates: start: 20220627, end: 20220629
  24. KYTRIL [Concomitant]
     Active Substance: GRANISETRON HYDROCHLORIDE
     Dosage: UNK
     Route: 042
     Dates: start: 20220719, end: 20220724
  25. SUCRALFATE [Concomitant]
     Active Substance: SUCRALFATE
     Indication: Prophylaxis
     Dosage: UNK
     Route: 048
     Dates: start: 20220628, end: 20220629
  26. SUCRALFATE [Concomitant]
     Active Substance: SUCRALFATE
     Dosage: UNK
     Route: 042
     Dates: start: 20220720, end: 20220720
  27. DECAL [CALCITRIOL] [Concomitant]
     Dosage: UNK
     Route: 042
     Dates: start: 20220725, end: 20220726
  28. CILASTATIN SODIUM\IMIPENEM [Concomitant]
     Active Substance: CILASTATIN SODIUM\IMIPENEM
     Dosage: UNK
     Route: 042
     Dates: start: 20220722, end: 20220804
  29. LASIX [Concomitant]
     Active Substance: FUROSEMIDE
     Dosage: UNK
     Route: 042
     Dates: start: 20220726, end: 20220727
  30. SANDOSTATIN [Concomitant]
     Active Substance: OCTREOTIDE ACETATE
     Dosage: UNK
     Route: 058
     Dates: start: 20220720, end: 20220726
  31. FLAGYL [Concomitant]
     Active Substance: METRONIDAZOLE\METRONIDAZOLE HYDROCHLORIDE
     Dosage: UNK
     Route: 042
     Dates: start: 20220722, end: 20220805
  32. MAGNESIUM SULFATE [Concomitant]
     Active Substance: MAGNESIUM SULFATE
     Dosage: UNK
     Route: 042
     Dates: start: 20220722, end: 20220723
  33. METHYLPREDNISOLONE [Concomitant]
     Active Substance: METHYLPREDNISOLONE
     Dosage: UNK
     Route: 042
     Dates: start: 20220725, end: 20220726

REACTIONS (6)
  - Pulmonary oedema [Fatal]
  - Fatigue [Not Recovered/Not Resolved]
  - Diarrhoea [Recovered/Resolved]
  - Decreased appetite [Not Recovered/Not Resolved]
  - Diarrhoea [Recovered/Resolved]
  - Nausea [Recovered/Resolved]

NARRATIVE: CASE EVENT DATE: 20220623
